FAERS Safety Report 15393854 (Version 1)
Quarter: 2018Q4

REPORT INFORMATION
  Report Type: Spontaneous
  Country: JP (occurrence: JP)
  Receive Date: 20180917
  Receipt Date: 20180917
  Transmission Date: 20190204
  Serious: Yes (Hospitalization)
  Sender: FDA-Public Use
  Company Number: JP-ALLERGAN-1845016US

PATIENT
  Age: 2 Year
  Sex: Female
  Weight: 13 kg

DRUGS (5)
  1. FREEZE-DRIED LIVE ATTENUATED VARICELLA VACCINE [Suspect]
     Active Substance: VARICELLA-ZOSTER VIRUS STRAIN OKA/MERCK LIVE ANTIGEN
     Dosage: 0.5 UNK, SINGLE
     Route: 058
     Dates: start: 20180517, end: 20180517
  2. DEXALTIN [Concomitant]
     Active Substance: DEXAMETHASONE
     Indication: ANGULAR CHEILITIS
     Dosage: UNK UNK, QD
     Route: 061
     Dates: start: 20180517
  3. FREEZE-DRIED LIVE ATTENUATED VARICELLA VACCINE [Suspect]
     Active Substance: VARICELLA-ZOSTER VIRUS STRAIN OKA/MERCK LIVE ANTIGEN
     Indication: PROPHYLAXIS
     Dosage: 0.5 UNK, SINGLE
     Route: 058
     Dates: start: 20180517, end: 20180517
  4. URSODEOXYCHOLIC ACID - BP [Suspect]
     Active Substance: URSODIOL
     Indication: LIVER TRANSPLANT
     Dosage: 60 MG, QD
     Route: 048
     Dates: start: 20160316
  5. PROGRAF [Concomitant]
     Active Substance: TACROLIMUS\TACROLIMUS ANHYDROUS
     Indication: LIVER TRANSPLANT
     Dosage: UNK
     Route: 048

REACTIONS (2)
  - Varicella [Recovering/Resolving]
  - Off label use [Unknown]

NARRATIVE: CASE EVENT DATE: 20180609
